FAERS Safety Report 7833678-0 (Version None)
Quarter: 2011Q4

REPORT INFORMATION
  Report Type: 
  Country: None (occurrence: None)
  Receive Date: 20111024
  Receipt Date: 20111014
  Transmission Date: 20120403
  Serious: Yes (Hospitalization)
  Sender: FDA-Public Use
  Company Number: US-ASTRAZENECA-2011SE50928

PATIENT
  Age: 36 Year
  Sex: Female

DRUGS (1)
  1. SEROQUEL [Suspect]
     Route: 048
     Dates: start: 20060101

REACTIONS (6)
  - PELVIC PAIN [None]
  - UPPER RESPIRATORY TRACT INFECTION [None]
  - VAGINAL HAEMORRHAGE [None]
  - DYSPHONIA [None]
  - IMPAIRED DRIVING ABILITY [None]
  - MALAISE [None]
